FAERS Safety Report 19820262 (Version 16)
Quarter: 2022Q1

REPORT INFORMATION
  Report Type: Report from Study
  Country: CL (occurrence: CL)
  Receive Date: 20210913
  Receipt Date: 20220312
  Transmission Date: 20220423
  Serious: Yes (Life-Threatening, Other)
  Sender: FDA-Public Use
  Company Number: NVSC2021CL206303

PATIENT
  Age: 66 Year
  Sex: Female

DRUGS (3)
  1. KISQALI [Suspect]
     Active Substance: RIBOCICLIB
     Indication: Breast cancer
     Dosage: 600 MG, QD
     Route: 048
     Dates: start: 20180712
  2. KISQALI [Suspect]
     Active Substance: RIBOCICLIB
     Dosage: 600 MG, QD
     Route: 048
     Dates: start: 20180712
  3. KISQALI [Suspect]
     Active Substance: RIBOCICLIB
     Dosage: 600 MG, QD
     Route: 048
     Dates: start: 20180712

REACTIONS (35)
  - Hypertensive crisis [Recovering/Resolving]
  - Malaise [Unknown]
  - Eyelid infection [Recovered/Resolved]
  - Epilepsy [Unknown]
  - Astigmatism [Recovering/Resolving]
  - Haematocrit increased [Unknown]
  - Mean cell volume increased [Unknown]
  - Laziness [Unknown]
  - Anisocytosis [Unknown]
  - Red blood cell sedimentation rate increased [Unknown]
  - Polychromasia [Unknown]
  - Elliptocytosis [Unknown]
  - White blood cell count increased [Unknown]
  - Blood creatinine increased [Unknown]
  - Gingival pain [Unknown]
  - Gingival disorder [Not Recovered/Not Resolved]
  - Tooth disorder [Unknown]
  - Asthma [Recovering/Resolving]
  - Memory impairment [Unknown]
  - Visual impairment [Unknown]
  - Ill-defined disorder [Unknown]
  - Dysgeusia [Unknown]
  - Blood thyroid stimulating hormone increased [Unknown]
  - Red cell distribution width increased [Unknown]
  - Poikilocytosis [Unknown]
  - Rouleaux formation [Unknown]
  - Coagulopathy [Unknown]
  - Abdominal discomfort [Unknown]
  - Nausea [Unknown]
  - Anaemia [Unknown]
  - Cough [Unknown]
  - Red blood cell count decreased [Unknown]
  - Neutrophil count decreased [Unknown]
  - Fatigue [Unknown]
  - Haemoglobin decreased [Unknown]

NARRATIVE: CASE EVENT DATE: 20211213
